FAERS Safety Report 15526121 (Version 1)
Quarter: 2018Q4

REPORT INFORMATION
  Report Type: Spontaneous
  Country: US (occurrence: US)
  Receive Date: 20181018
  Receipt Date: 20181018
  Transmission Date: 20190205
  Serious: Yes (Other)
  Sender: FDA-Public Use
  Company Number: US-TORRENT-00007052

PATIENT
  Age: 57 Year
  Sex: Female

DRUGS (2)
  1. PHENOBARBITAL. [Concomitant]
     Active Substance: PHENOBARBITAL
     Indication: SEIZURE
     Dosage: UNKNOWN
  2. CARBAMAZEPINE. [Suspect]
     Active Substance: CARBAMAZEPINE
     Indication: SEIZURE
     Dosage: UNKNOWN

REACTIONS (2)
  - Syncope [Unknown]
  - Thrombosis [Recovered/Resolved]
